FAERS Safety Report 7625012-6 (Version None)
Quarter: 2011Q3

REPORT INFORMATION
  Report Type: 
  Country: None (occurrence: None)
  Receive Date: 20110721
  Receipt Date: 20110713
  Transmission Date: 20111222
  Serious: Yes (Hospitalization)
  Sender: FDA-Public Use
  Company Number: US-BIOGENIDEC-2010BI017490

PATIENT
  Age: 61 Year
  Sex: Female

DRUGS (3)
  1. TYSABRI [Suspect]
     Indication: MULTIPLE SCLEROSIS
     Route: 042
     Dates: start: 20070219, end: 20091214
  2. TYSABRI [Suspect]
     Route: 042
     Dates: start: 20100315, end: 20100315
  3. ASCORBIC ACID [Concomitant]
     Indication: INFECTION PROPHYLAXIS

REACTIONS (2)
  - URINARY TRACT INFECTION [None]
  - DRUG HYPERSENSITIVITY [None]
